FAERS Safety Report 4311271-4 (Version None)
Quarter: 2004Q1

REPORT INFORMATION
  Report Type: 
  Country: None (occurrence: None)
  Receive Date: 20040302
  Receipt Date: 20031110
  Transmission Date: 20041129
  Serious: Yes (Hospitalization)
  Sender: FDA-Public Use
  Company Number: BDI-005584

PATIENT
  Age: 52 Year
  Sex: Male

DRUGS (2)
  1. IOPAMIDOL [Suspect]
     Indication: ABDOMINAL PAIN
     Dosage: 125 ML ONCE IV
     Dates: start: 20031006, end: 20031006
  2. IOPAMIDOL [Suspect]
     Indication: COMPUTERISED TOMOGRAM
     Dosage: 125 ML ONCE IV
     Dates: start: 20031006, end: 20031006

REACTIONS (9)
  - BLOOD PRESSURE IMMEASURABLE [None]
  - DIZZINESS [None]
  - DYSPNOEA [None]
  - ERYTHEMA [None]
  - FACE OEDEMA [None]
  - HEART RATE INCREASED [None]
  - LARYNGEAL OEDEMA [None]
  - RESPIRATORY RATE INCREASED [None]
  - SNEEZING [None]
